FAERS Safety Report 5009293-3 (Version None)
Quarter: 2006Q2

REPORT INFORMATION
  Report Type: 
  Country: None (occurrence: None)
  Receive Date: 20060524
  Receipt Date: 20060516
  Transmission Date: 20061013
  Serious: Yes (Other)
  Sender: FDA-Public Use
  Company Number: PHBS2006JP07282

PATIENT

DRUGS (3)
  1. INSULIN [Concomitant]
  2. BASEN [Concomitant]
     Route: 048
  3. LAMISIL [Suspect]
     Dosage: 125 MG/D
     Route: 048

REACTIONS (1)
  - BLOOD GLUCOSE INCREASED [None]
